FAERS Safety Report 19535354 (Version 1)
Quarter: 2021Q3

REPORT INFORMATION
  Report Type: Spontaneous
  Country: US (occurrence: US)
  Receive Date: 20210713
  Receipt Date: 20210713
  Transmission Date: 20211014
  Serious: Yes (Other)
  Sender: FDA-Public Use
  Company Number: None

PATIENT
  Age: 73 Year
  Sex: Female

DRUGS (6)
  1. CLONAZEPAM 1 MG [Concomitant]
     Active Substance: CLONAZEPAM
  2. IBUPROFEN 800 MG [Concomitant]
     Active Substance: IBUPROFEN
  3. MIRTAZAPINE 30 MG [Concomitant]
     Active Substance: MIRTAZAPINE
  4. RESTASIS [Concomitant]
     Active Substance: CYCLOSPORINE
  5. NUPLAZID [Suspect]
     Active Substance: PIMAVANSERIN TARTRATE
     Indication: PARKINSON^S DISEASE
     Route: 048
     Dates: start: 20210708
  6. AMANTADINE 100 MG [Concomitant]
     Active Substance: AMANTADINE

REACTIONS (1)
  - Hypokinesia [None]

NARRATIVE: CASE EVENT DATE: 20210708
